FAERS Safety Report 24878918 (Version 1)
Quarter: 2025Q1

REPORT INFORMATION
  Report Type: Spontaneous
  Country: US (occurrence: US)
  Receive Date: 20250123
  Receipt Date: 20250123
  Transmission Date: 20250409
  Serious: No
  Sender: CATALYST PHARMA
  Company Number: US-CATALYST PHARMACEUTICALS, INC-US-CATA-22-02701

PATIENT
  Sex: Male
  Weight: 88.435 kg

DRUGS (7)
  1. FIRDAPSE [Suspect]
     Active Substance: AMIFAMPRIDINE PHOSPHATE
     Indication: Myasthenic syndrome
     Dosage: 20 MG IN THE AM, 20 MG IN THE AFTERNOON, AND 15 MG IN THE PM
     Route: 048
     Dates: start: 20200720
  2. FIRDAPSE [Suspect]
     Active Substance: AMIFAMPRIDINE PHOSPHATE
     Dosage: 20 MG/AM, 20 MG/NOON, 10 MG/AFTERNOON, 10 MG/HS
     Route: 048
  3. CELLCEPT [Concomitant]
     Active Substance: MYCOPHENOLATE MOFETIL
     Indication: Product used for unknown indication
     Dosage: 1500 MG TWICE DAILY
     Route: 048
     Dates: start: 2022, end: 20241031
  4. HUMAN IMMUNOGLOBULIN G [Concomitant]
     Active Substance: HUMAN IMMUNOGLOBULIN G
     Indication: Product used for unknown indication
     Route: 042
     Dates: start: 201907, end: 202001
  5. HUMAN IMMUNOGLOBULIN G [Concomitant]
     Active Substance: HUMAN IMMUNOGLOBULIN G
     Dosage: 1 GM/KG EVERY 4 WEEKS
     Route: 042
     Dates: start: 20200720
  6. MESTINON [Concomitant]
     Active Substance: PYRIDOSTIGMINE BROMIDE
     Indication: Product used for unknown indication
     Dosage: 60 MG DAILY
     Route: 048
     Dates: start: 20200901
  7. RITUXIMAB [Concomitant]
     Active Substance: RITUXIMAB
     Indication: Product used for unknown indication
     Route: 042
     Dates: start: 20241031

REACTIONS (7)
  - Dysarthria [Unknown]
  - Mental impairment [Unknown]
  - Visual impairment [Unknown]
  - Injury [Unknown]
  - Dizziness [Unknown]
  - Dyspnoea [Unknown]
  - Drug ineffective [Unknown]
